FAERS Safety Report 7814820-4 (Version None)
Quarter: 2011Q4

REPORT INFORMATION
  Report Type: 
  Country: None (occurrence: None)
  Receive Date: 20111014
  Receipt Date: 20111005
  Transmission Date: 20120403
  Serious: Yes (Other)
  Sender: FDA-Public Use
  Company Number: PHHY2011PL88450

PATIENT
  Age: 28 Year
  Sex: Male

DRUGS (5)
  1. METFORMIN HYDROCHLORIDE [Suspect]
     Dosage: 2.55 G, QD
  2. LEVOTHYROXINE SODIUM [Concomitant]
     Indication: HYPERTHYROIDISM
     Dosage: 500 UG, UNK
  3. LEVOTHYROXINE SODIUM [Concomitant]
     Dosage: 500 UG, UNK
  4. LEVOTHYROXINE SODIUM [Concomitant]
     Dosage: 300 UG, UNK
  5. METFORMIN HYDROCHLORIDE [Suspect]
     Indication: TYPE 2 DIABETES MELLITUS
     Dosage: 500 MG, QD

REACTIONS (5)
  - NERVOUSNESS [None]
  - HYPERTHYROIDISM [None]
  - TACHYCARDIA [None]
  - TREMOR [None]
  - INSOMNIA [None]
